FAERS Safety Report 24002740 (Version 1)
Quarter: 2024Q2

REPORT INFORMATION
  Report Type: Spontaneous
  Country: ES (occurrence: ES)
  Receive Date: 20240624
  Receipt Date: 20240624
  Transmission Date: 20240716
  Serious: Yes (Other)
  Sender: FDA-Public Use
  Company Number: None

PATIENT
  Age: 67 Year
  Sex: Female

DRUGS (3)
  1. NUCYNTA ER [Suspect]
     Active Substance: TAPENTADOL HYDROCHLORIDE
     Indication: Product used for unknown indication
     Dosage: 50 MILLIGRAM, UNKNOWN
     Route: 065
     Dates: start: 20240508
  2. LYRICA [Suspect]
     Active Substance: PREGABALIN
     Indication: Product used for unknown indication
     Dosage: 75 MILLIGRAM, UNKNOWN
     Route: 065
     Dates: start: 20240508
  3. CELEBREX [Suspect]
     Active Substance: CELECOXIB
     Indication: Muscle rigidity
     Dosage: 200 MILLIGRAM, QD (1/DAY)
     Route: 048
     Dates: start: 20240508, end: 20240521

REACTIONS (2)
  - Eye oedema [Recovered/Resolved]
  - Face oedema [Recovered/Resolved]

NARRATIVE: CASE EVENT DATE: 20240521
